FAERS Safety Report 4293531-9 (Version None)
Quarter: 2004Q1

REPORT INFORMATION
  Report Type: 
  Country: None (occurrence: None)
  Receive Date: 20040126
  Receipt Date: 20030829
  Transmission Date: 20041129
  Serious: No
  Sender: FDA-Public Use
  Company Number: USA030945853

PATIENT
  Age: 81 Year
  Sex: Female
  Weight: 38 kg

DRUGS (3)
  1. FORTEO [Suspect]
     Indication: FRACTURE
     Dates: start: 20030701
  2. MIACALCIN [Concomitant]
  3. TUMS (CALCIUM CARBONATE) [Concomitant]

REACTIONS (5)
  - ASTHENIA [None]
  - DECUBITUS ULCER [None]
  - FATIGUE [None]
  - ILL-DEFINED DISORDER [None]
  - SOMNOLENCE [None]
